FAERS Safety Report 6644553-1 (Version None)
Quarter: 2010Q1

REPORT INFORMATION
  Report Type: 
  Country: None (occurrence: None)
  Receive Date: 20100304
  Receipt Date: 20081229
  Transmission Date: 20100710
  Serious: Yes (Hospitalization)
  Sender: FDA-Public Use
  Company Number: US-002316

PATIENT
  Age: 63 Year
  Sex: Female
  Weight: 90 kg

DRUGS (2)
  1. ISOVUE-300 [Suspect]
     Indication: COMPUTERISED TOMOGRAM
     Dosage: 100ML QD INTRAVENOUS
     Route: 042
     Dates: start: 20081114, end: 20081114
  2. ISOVUE-300 [Suspect]
     Indication: MASS
     Dosage: 100ML QD INTRAVENOUS
     Route: 042
     Dates: start: 20081114, end: 20081114

REACTIONS (1)
  - ANAPHYLACTIC SHOCK [None]
